FAERS Safety Report 5824621-4 (Version None)
Quarter: 2008Q3

REPORT INFORMATION
  Report Type: 
  Country: None (occurrence: None)
  Receive Date: 20080728
  Receipt Date: 20080716
  Transmission Date: 20090109
  Serious: Yes (Hospitalization, Other)
  Sender: FDA-Public Use
  Company Number: US-ELI_LILLY_AND_COMPANY-US200807003412

PATIENT
  Sex: Female

DRUGS (2)
  1. FORTEO [Suspect]
     Indication: OSTEOPOROSIS
     Dates: start: 20080401, end: 20080601
  2. FORTEO [Suspect]
     Dates: start: 20080709

REACTIONS (3)
  - ASTHENIA [None]
  - CEREBRAL HAEMORRHAGE [None]
  - FALL [None]
